FAERS Safety Report 20578646 (Version 7)
Quarter: 2022Q3

REPORT INFORMATION
  Report Type: Report from Study
  Country: ES (occurrence: ES)
  Receive Date: 20220310
  Receipt Date: 20220810
  Transmission Date: 20221026
  Serious: Yes (Hospitalization, Other)
  Sender: FDA-Public Use
  Company Number: ES-ROCHE-2976622

PATIENT
  Age: 68 Year
  Sex: Male
  Weight: 103.6 kg

DRUGS (48)
  1. CYCLOPHOSPHAMIDE [Suspect]
     Active Substance: CYCLOPHOSPHAMIDE
     Indication: Diffuse large B-cell lymphoma
     Dosage: 1657.5 MG/M2, 3 WEEKS, ON 12/NOV/2021, HE RECEIVED MOST RECENT DOSE TOTAL VOLUME: 332.88 ML OF CYCLO
     Route: 042
     Dates: start: 20211022
  2. DOXORUBICIN [Suspect]
     Active Substance: DOXORUBICIN
     Indication: Diffuse large B-cell lymphoma
     Dosage: 110.5 MG/M2, 3 WEEKS, ON 12/NOV/2021, HE RECEIVED MOST RECENT DOSE OF DOXORUBICIN PRIOR TO SAE  TOTA
     Route: 042
     Dates: start: 20211022
  3. VINCRISTINE [Suspect]
     Active Substance: VINCRISTINE
     Indication: Diffuse large B-cell lymphoma
     Dosage: 2 MG/M2, 3 WEEKS, ON 12/NOV/2021, HE RECEIVED MOST RECENT DOSE OF VINCRISTINE (1.99 MG) PRIOR TO SAE
     Route: 042
     Dates: start: 20211022
  4. PREDNISONE [Suspect]
     Active Substance: PREDNISONE
     Indication: Diffuse large B-cell lymphoma
     Dosage: 100 MG, ON 16/NOV/2021, HE RECEIVED MOST RECENT DOSE OF PREDNISONE PRIOR TO SAE
     Route: 048
     Dates: start: 20211023
  5. PREDNISONE [Suspect]
     Active Substance: PREDNISONE
     Dosage: UNK
     Route: 065
     Dates: start: 20211205, end: 20211206
  6. RITUXIMAB [Suspect]
     Active Substance: RITUXIMAB
     Indication: Diffuse large B-cell lymphoma
     Dosage: ON 12/NOV/2021, HE RECEIVED MOST RECENT DOSE OF RITUXIMAB PRIOR TO SAE (TOTAL VOLUME : 332.9 ML), RO
     Route: 042
     Dates: start: 20211022
  7. RITUXIMAB [Suspect]
     Active Substance: RITUXIMAB
     Dosage: 828.75, MG/M2 (MILLIGRAM PER SQUARE METRE), 3 WEEKS, ON 12/NOV/2021, HE RECEIVED MOST RECENT DOSE (3
     Route: 042
     Dates: start: 20211022
  8. METHYLPREDNISOLONE [Suspect]
     Active Substance: METHYLPREDNISOLONE
     Indication: Diffuse large B-cell lymphoma
     Dosage: 80 MG, ON 12/NOV/2021, HE RECEIVED MOST RECENT DOSE OF METHYLPREDNISOLONE PRIOR TO SAE
     Route: 048
     Dates: start: 20211022
  9. GLOFITAMAB [Suspect]
     Active Substance: GLOFITAMAB
     Indication: Diffuse large B-cell lymphoma
     Dosage: 2.5 MG, 3X A WEEK,ON 03/DEC/2021, HE RECEIVED MOST RECENT DOSE OF GLOFITAMAB 10 MG (TOTAL VOLUME : 1
     Route: 042
     Dates: start: 20211119
  10. GLOFITAMAB [Suspect]
     Active Substance: GLOFITAMAB
     Dosage: 2.5 MG, 3X A WEEK,ON 03/DEC/2021, HE RECEIVED MOST RECENT DOSE OF
     Route: 042
     Dates: start: 20211119
  11. ACYCLOVIR [Concomitant]
     Active Substance: ACYCLOVIR
     Indication: Antiviral prophylaxis
     Dosage: UNK
     Route: 065
     Dates: start: 20211019
  12. ALLOPURINOL [Concomitant]
     Active Substance: ALLOPURINOL
     Indication: Hyperuricaemia
     Dosage: UNK
     Route: 065
  13. CIPROFLOXACIN [Concomitant]
     Active Substance: CIPROFLOXACIN
     Indication: Pyrexia
     Dosage: UNK
     Route: 065
     Dates: start: 20211106, end: 20211106
  14. TENOFOVIR [Concomitant]
     Active Substance: TENOFOVIR
     Indication: Antiviral prophylaxis
     Dosage: UNK
     Route: 065
     Dates: start: 20211019
  15. AMOXICILLIN [Concomitant]
     Active Substance: AMOXICILLIN
     Indication: Pyrexia
     Dosage: UNK
     Route: 065
     Dates: start: 20211106, end: 20211106
  16. AMOXICILLIN [Concomitant]
     Active Substance: AMOXICILLIN
     Indication: COVID-19
     Dosage: UNK,ADVERSE EVENT OR INTERCURRENT ILLNESS - 1011 -SARSCOV2 - 23 DEC 2021
     Route: 065
     Dates: start: 20211226, end: 202201
  17. FILGRASTIM [Concomitant]
     Active Substance: FILGRASTIM
     Indication: Neutropenia
     Dosage: UNK
     Route: 065
     Dates: start: 20211215, end: 20211216
  18. FILGRASTIM [Concomitant]
     Active Substance: FILGRASTIM
     Dosage: UNK
     Route: 065
     Dates: start: 20211026, end: 20211027
  19. FILGRASTIM [Concomitant]
     Active Substance: FILGRASTIM
     Dosage: UNK
     Route: 065
     Dates: start: 20211027, end: 20211028
  20. TRIMETHOPRIM [Concomitant]
     Active Substance: TRIMETHOPRIM
     Indication: Antibiotic prophylaxis
     Dosage: UNK
     Route: 065
     Dates: start: 20211019
  21. VALSARTAN [Concomitant]
     Active Substance: VALSARTAN
     Indication: Hypertension
     Dosage: UNK
     Route: 065
  22. ASPIRIN [Concomitant]
     Active Substance: ASPIRIN
     Indication: Pain
     Dosage: UNK
     Route: 065
  23. PIPERACILLIN AND TAZOBACTAM [Concomitant]
     Active Substance: PIPERACILLIN SODIUM\TAZOBACTAM SODIUM
     Indication: COVID-19
     Dosage: UNK
     Route: 065
     Dates: start: 20211225
  24. PIPERACILLIN AND TAZOBACTAM [Concomitant]
     Active Substance: PIPERACILLIN SODIUM\TAZOBACTAM SODIUM
     Indication: Cytokine release syndrome
     Dosage: UNK
     Route: 065
     Dates: start: 20211231
  25. PIPERACILLIN AND TAZOBACTAM [Concomitant]
     Active Substance: PIPERACILLIN SODIUM\TAZOBACTAM SODIUM
     Dosage: UNK
     Route: 065
     Dates: start: 20211204, end: 20211205
  26. PIPERACILLIN AND TAZOBACTAM [Concomitant]
     Active Substance: PIPERACILLIN SODIUM\TAZOBACTAM SODIUM
     Dosage: UNK
     Route: 065
     Dates: start: 20211224, end: 20211226
  27. ZOFRAN [Concomitant]
     Active Substance: ONDANSETRON HYDROCHLORIDE
     Indication: Nausea
     Dosage: UNK
     Route: 065
     Dates: start: 20211118
  28. ACETAMINOPHEN [Concomitant]
     Active Substance: ACETAMINOPHEN
     Indication: Prophylaxis
     Dosage: 1 GRAM,1G/DAY
     Route: 048
     Dates: start: 20211217, end: 20211217
  29. ACETAMINOPHEN [Concomitant]
     Active Substance: ACETAMINOPHEN
     Dosage: 1 GRAM, 1X/DAY
     Route: 048
     Dates: start: 20211119, end: 20211119
  30. ACETAMINOPHEN [Concomitant]
     Active Substance: ACETAMINOPHEN
     Dosage: UNK, 1G/DAY
     Route: 048
     Dates: start: 20211210, end: 20211210
  31. ACETAMINOPHEN [Concomitant]
     Active Substance: ACETAMINOPHEN
     Dosage: 1 GRAM,1G/DAY
     Route: 048
     Dates: start: 20211203, end: 20211203
  32. CLAVULANIC ACID [Concomitant]
     Active Substance: CLAVULANIC ACID
     Indication: Pyrexia
     Dosage: UNK
     Route: 065
     Dates: start: 20211106, end: 20211106
  33. CLAVULANIC ACID [Concomitant]
     Active Substance: CLAVULANIC ACID
     Indication: COVID-19
     Dosage: UNK,SARS-COV2 INFECTION WITHOUT ASSOCIATED PNEUMONIA
     Route: 065
     Dates: start: 20211226, end: 202201
  34. SULFAMETHOXAZOLE [Concomitant]
     Active Substance: SULFAMETHOXAZOLE
     Indication: Antibiotic prophylaxis
     Dosage: UNK
     Route: 065
     Dates: start: 20211019
  35. DEXAMETHASONE [Concomitant]
     Active Substance: DEXAMETHASONE
     Indication: Prophylaxis
     Dosage: 20 MILLIGRAM
     Route: 042
     Dates: start: 20211203, end: 20211203
  36. DEXAMETHASONE [Concomitant]
     Active Substance: DEXAMETHASONE
     Dosage: 5 MILLIGRAM
     Route: 042
     Dates: start: 20211119, end: 20211119
  37. DEXAMETHASONE [Concomitant]
     Active Substance: DEXAMETHASONE
     Dosage: 20 MILLIGRAM
     Route: 042
     Dates: start: 20211217, end: 20211217
  38. DEXAMETHASONE [Concomitant]
     Active Substance: DEXAMETHASONE
     Dosage: 20 MILLIGRAM
     Route: 042
     Dates: start: 20211119, end: 20211119
  39. DEXCHLORPHENIRAMINE [Concomitant]
     Active Substance: DEXCHLORPHENIRAMINE
     Indication: Prophylaxis
     Dosage: 5 MILLIGRAM
     Route: 042
     Dates: start: 20211119, end: 20211119
  40. DEXCHLORPHENIRAMINE [Concomitant]
     Active Substance: DEXCHLORPHENIRAMINE
     Dosage: 5 MILLIGRAM
     Route: 042
     Dates: start: 20211210, end: 20211210
  41. DEXCHLORPHENIRAMINE [Concomitant]
     Active Substance: DEXCHLORPHENIRAMINE
     Dosage: 5 MILLIGRAM,
     Route: 042
     Dates: start: 20211217, end: 20211217
  42. DEXCHLORPHENIRAMINE [Concomitant]
     Active Substance: DEXCHLORPHENIRAMINE
     Dosage: 5 MILLIGRAM
     Route: 042
     Dates: start: 20211203, end: 20211203
  43. MEROPENEM [Concomitant]
     Active Substance: MEROPENEM
     Indication: Cytokine release syndrome
     Dosage: UNK
     Route: 065
     Dates: start: 20211203, end: 20211204
  44. PREDNISONE [Concomitant]
     Active Substance: PREDNISONE
     Indication: Product used for unknown indication
     Dosage: UNK
     Route: 065
     Dates: start: 20211205, end: 20211206
  45. LORAZEPAM [Concomitant]
     Active Substance: LORAZEPAM
     Indication: Product used for unknown indication
     Route: 065
  46. METAMIZOLE [Concomitant]
     Active Substance: METAMIZOLE
     Indication: COVID-19
     Dosage: UNK
     Route: 065
     Dates: start: 20211226
  47. TAZOBACTAM [Concomitant]
     Active Substance: TAZOBACTAM
     Indication: COVID-19
     Dosage: UNK
     Route: 065
  48. REMDESIVIR [Concomitant]
     Active Substance: REMDESIVIR
     Indication: COVID-19
     Dosage: UNK,ADVERSE EVENT OR INTERCURRENT ILLNESS - 1011 -ADVERSE EVENT OR INTERCURRENT ILLNESS - 1011 -ADVE
     Dates: start: 20211225

REACTIONS (2)
  - Cytokine release syndrome [Recovered/Resolved with Sequelae]
  - Neutropenia [Recovered/Resolved]

NARRATIVE: CASE EVENT DATE: 20211125
